FAERS Safety Report 21651087 (Version 3)
Quarter: 2023Q2

REPORT INFORMATION
  Report Type: Report from Study
  Country: US (occurrence: US)
  Receive Date: 20221128
  Receipt Date: 20230412
  Transmission Date: 20230721
  Serious: No
  Sender: FDA-Public Use
  Company Number: US-ABBVIE-4181122

PATIENT
  Age: 69 Year
  Sex: Male

DRUGS (2)
  1. SKYRIZI [Suspect]
     Active Substance: RISANKIZUMAB-RZAA
     Indication: Psoriasis
     Dosage: FORM STRENGTH: 150 MG?WEEK 0?LAST ADMIN DATE:2022
     Route: 058
     Dates: start: 20220928
  2. SKYRIZI [Suspect]
     Active Substance: RISANKIZUMAB-RZAA
     Dosage: LAST ADMIN DATE:2022?FORM STRENGTH: 150MG?WEEK 4
     Route: 058

REACTIONS (6)
  - Cough [Not Recovered/Not Resolved]
  - Therapeutic product effect incomplete [Unknown]
  - Rhinorrhoea [Unknown]
  - Psoriasis [Unknown]
  - Pain [Unknown]
  - Nasopharyngitis [Unknown]

NARRATIVE: CASE EVENT DATE: 20221101
